FAERS Safety Report 21664419 (Version 3)
Quarter: 2022Q4

REPORT INFORMATION
  Report Type: Report from Study
  Country: CA (occurrence: CA)
  Receive Date: 20221130
  Receipt Date: 20221215
  Transmission Date: 20230112
  Serious: Yes (Other)
  Sender: FDA-Public Use
  Company Number: CA-VERTEX PHARMACEUTICALS-2022-005718

PATIENT
  Age: 33 Year
  Sex: Male
  Weight: 68 kg

DRUGS (7)
  1. ELEXACAFTOR\IVACAFTOR\TEZACAFTOR [Suspect]
     Active Substance: ELEXACAFTOR\IVACAFTOR\TEZACAFTOR
     Indication: Cystic fibrosis
     Dosage: 200MG ELEXACAFTOR/ 100 MG TEZACAFTOR, QD AND 150 MG IVACAFTOR, Q12H
     Route: 048
     Dates: start: 20220310, end: 20220406
  2. CREON [Concomitant]
     Active Substance: PANCRELIPASE AMYLASE\PANCRELIPASE LIPASE\PANCRELIPASE PROTEASE
     Indication: Pancreatic failure
     Dosage: 25000 UNITS LIPASE WITH MEALS, TID
     Route: 048
     Dates: start: 2011
  3. PULMOZYME [Concomitant]
     Active Substance: DORNASE ALFA
     Indication: Cystic fibrosis lung
     Dosage: 4 ML, QD
     Dates: start: 20111116
  4. SODIUM CHLORIDE [Concomitant]
     Active Substance: SODIUM CHLORIDE
     Indication: Cystic fibrosis lung
     Dosage: 7 %, QD
     Dates: start: 20160425
  5. DOXYCYCLINE [Concomitant]
     Active Substance: DOXYCYCLINE
     Indication: Cystic fibrosis lung
     Dosage: 100 MG, BID X14 DAYS ON/OFF.
     Dates: start: 20210607
  6. SYMBICORT [Concomitant]
     Active Substance: BUDESONIDE\FORMOTEROL FUMARATE DIHYDRATE
     Indication: Cystic fibrosis lung
     Dosage: 200 MICROGRAM, Q12H
     Dates: start: 20190311
  7. VENTOLIN [Concomitant]
     Active Substance: ALBUTEROL SULFATE
     Indication: Cystic fibrosis lung
     Dosage: 100 MICROGRAM, BID
     Dates: start: 2010

REACTIONS (4)
  - Gamma-glutamyltransferase increased [Recovered/Resolved]
  - Blood bilirubin increased [Recovered/Resolved]
  - Alanine aminotransferase increased [Recovered/Resolved]
  - Aspartate aminotransferase increased [Recovered/Resolved]

NARRATIVE: CASE EVENT DATE: 20220407
